FAERS Safety Report 7824363-X (Version None)
Quarter: 2011Q4

REPORT INFORMATION
  Report Type: 
  Country: None (occurrence: None)
  Receive Date: 20111019
  Receipt Date: 20111011
  Transmission Date: 20120403
  Serious: Yes (Hospitalization)
  Sender: FDA-Public Use
  Company Number: ES-BRISTOL-MYERS SQUIBB COMPANY-16166027

PATIENT
  Age: 56 Year
  Sex: Male

DRUGS (1)
  1. MITOMYCIN [Suspect]
     Dosage: INJ INTRAVESCICAL
     Route: 043

REACTIONS (6)
  - DYSURIA [None]
  - RASH PRURITIC [None]
  - MALAISE [None]
  - HAEMATURIA [None]
  - MYALGIA [None]
  - POLLAKIURIA [None]
